FAERS Safety Report 15149419 (Version 1)
Quarter: 2018Q3

REPORT INFORMATION
  Report Type: Spontaneous
  Country: US (occurrence: US)
  Receive Date: 20180619
  Receipt Date: 20180619
  Transmission Date: 20181010
  Serious: Yes (Hospitalization)
  Sender: FDA-Public Use
  Company Number: None

PATIENT
  Age: 9 Year
  Sex: Male

DRUGS (6)
  1. LEVALBUTEROL. [Concomitant]
     Active Substance: LEVALBUTEROL
  2. REVATIO [Suspect]
     Active Substance: SILDENAFIL CITRATE
     Indication: DOUBLE OUTLET RIGHT VENTRICLE
     Route: 048
  3. PREDNISONE. [Concomitant]
     Active Substance: PREDNISONE
  4. AMOX/K CLAV [Concomitant]
     Active Substance: AMOXICILLIN\CLAVULANATE POTASSIUM
  5. BROM/PSE/DM [Concomitant]
  6. CYPROHEPTAD [Concomitant]

REACTIONS (2)
  - Pneumonia [None]
  - Ill-defined disorder [None]

NARRATIVE: CASE EVENT DATE: 201805
